FAERS Safety Report 6168876-8 (Version None)
Quarter: 2009Q2

REPORT INFORMATION
  Report Type: 
  Country: None (occurrence: None)
  Receive Date: 20090427
  Receipt Date: 20090417
  Transmission Date: 20091009
  Serious: Yes (Hospitalization, Other)
  Sender: FDA-Public Use
  Company Number: IN-PFIZER INC-2009171824

PATIENT

DRUGS (3)
  1. AMLODIPINE BESYLATE [Suspect]
     Dosage: 100 MG, SINGLE
     Route: 048
  2. DICLOFENAC SODIUM [Suspect]
     Route: 048
  3. SALBUTAMOL [Concomitant]

REACTIONS (5)
  - HYPOTENSION [None]
  - NON-CARDIOGENIC PULMONARY OEDEMA [None]
  - OVERDOSE [None]
  - SOMNOLENCE [None]
  - VOMITING [None]
